FAERS Safety Report 8920567 (Version 1)
Quarter: 2012Q4

REPORT INFORMATION
  Report Type: Report from Study
  Country: IN (occurrence: US)
  Receive Date: 20121121
  Receipt Date: 20121121
  Transmission Date: 20130627
  Serious: Yes (Death, Hospitalization, Other)
  Sender: FDA-Public Use
  Company Number: US-BRISTOL-MYERS SQUIBB COMPANY-15540396

PATIENT
  Age: 66 Year
  Sex: Male

DRUGS (15)
  1. IPILIMUMAB [Suspect]
     Indication: MALIGNANT MELANOMA
     Dosage: 311.4mg:10Jan11-10Jan11
316.2mg:20Dec10-20Dec10
     Route: 042
     Dates: start: 20101220, end: 20110121
  2. BUDENOSIDE [Concomitant]
     Indication: PAIN
     Dosage: as needed
     Route: 048
  3. BENAZEPRIL HCL [Concomitant]
     Dosage: 1 Df=20/12.5mg
     Route: 048
     Dates: start: 20110121
  4. LORTAB [Concomitant]
     Indication: PAIN
     Dosage: 1 DF=5/500mg
as needed
1-2 tabs
     Route: 048
  5. AMLODIPINE [Concomitant]
     Route: 049
  6. MULTIVITAMIN [Concomitant]
     Dosage: 1 Df=1tab
     Route: 048
  7. LOMOTIL [Concomitant]
     Indication: DIARRHOEA
     Dosage: 1 Df=2 tabs
as needed
     Route: 048
  8. HYDROCORTISONE [Concomitant]
     Indication: RASH
     Dosage: 1 Df= 1 application
cream
     Route: 061
  9. ZOFRAN [Concomitant]
     Indication: NAUSEA
     Dosage: as needed
     Route: 048
  10. ZOLPIDEM [Concomitant]
     Dosage: every nyt
     Route: 048
  11. LOVENOX [Concomitant]
     Indication: DEEP VEIN THROMBOSIS
     Route: 058
  12. RANITIDINE [Concomitant]
     Route: 048
  13. LORAZEPAM [Concomitant]
     Indication: INSOMNIA
     Dosage: as needed
     Route: 048
  14. LORAZEPAM [Concomitant]
     Indication: NAUSEA
     Dosage: as needed
     Route: 048
  15. LORAZEPAM [Concomitant]
     Indication: ANXIETY
     Dosage: as needed
     Route: 048

REACTIONS (7)
  - Malignant neoplasm progression [Fatal]
  - Renal failure [Recovered/Resolved]
  - Respiratory failure [Recovered/Resolved]
  - Diarrhoea [Recovered/Resolved]
  - Blood uric acid increased [Recovered/Resolved]
  - Pneumonia [Recovered/Resolved]
  - Abdominal pain [Not Recovered/Not Resolved]
